FAERS Safety Report 9241691 (Version 2)
Quarter: 2014Q1

REPORT INFORMATION
  Report Type: Report from Study
  Country: CA (occurrence: CA)
  Receive Date: 20130419
  Receipt Date: 20140115
  Transmission Date: 20141002
  Serious: Yes (Hospitalization)
  Sender: FDA-Public Use
  Company Number: CA-BRISTOL-MYERS SQUIBB COMPANY-18772897

PATIENT
  Age: 62 Year
  Sex: Male

DRUGS (13)
  1. ORENCIA [Suspect]
     Indication: RHEUMATOID ARTHRITIS
     Dosage: 100(UNITS NOS).
     Dates: start: 20130213
  2. LOSARTAN [Concomitant]
  3. ZYLOPRIM [Concomitant]
  4. PLAQUENIL [Concomitant]
  5. ARAVA [Concomitant]
  6. VITAMIN D [Concomitant]
  7. CALCIUM [Concomitant]
  8. RISEDRONATE SODIUM [Concomitant]
  9. PREDNISONE [Concomitant]
  10. STATEX [Concomitant]
  11. LORAZEPAM [Concomitant]
  12. ESOMEPRAZOLE [Concomitant]
     Dosage: APO-ESOMEPRAZOLE
  13. DOCUSATE [Concomitant]
     Dosage: EURO DOCUSATE

REACTIONS (2)
  - Anaemia [Recovering/Resolving]
  - Gastroenteritis [Recovered/Resolved]
